FAERS Safety Report 10053054 (Version 2)
Quarter: 2014Q3

REPORT INFORMATION
  Report Type: Spontaneous
  Country: DK (occurrence: None)
  Receive Date: 20140331
  Receipt Date: 20140707
  Transmission Date: 20150326
  Serious: No
  Sender: FDA-Public Use
  Company Number: DK2014K0942LIT

PATIENT
  Age: 31 Year
  Sex: Female

DRUGS (1)
  1. LANSOPRAZOLE GENERIC (LANSOPRAZOLE) UNKNOWN [Suspect]
     Active Substance: LANSOPRAZOLE

REACTIONS (2)
  - Condition aggravated [None]
  - Subacute cutaneous lupus erythematosus [None]
